FAERS Safety Report 4930043-0 (Version None)
Quarter: 2006Q1

REPORT INFORMATION
  Report Type: 
  Country: None (occurrence: None)
  Receive Date: 20060302
  Receipt Date: 20060223
  Transmission Date: 20060701
  Serious: Yes (Other)
  Sender: FDA-Public Use
  Company Number: PHBS2006CH03210

PATIENT
  Age: 66 Year
  Sex: Male

DRUGS (1)
  1. LAMISIL [Suspect]
     Dates: start: 20040101, end: 20040101

REACTIONS (6)
  - ABDOMINAL PAIN [None]
  - DIARRHOEA [None]
  - GASTROINTESTINAL DISORDER [None]
  - PANCREATIC ENZYMES ABNORMAL [None]
  - PANCREATIC INSUFFICIENCY [None]
  - STEATORRHOEA [None]
